FAERS Safety Report 5209657-9 (Version None)
Quarter: 2006Q4

REPORT INFORMATION
  Report Type: 
  Country: None (occurrence: None)
  Receive Date: 20061122
  Receipt Date: 20060111
  Transmission Date: 20070319
  Serious: Yes (Other)
  Sender: FDA-Public Use
  Company Number: 2005108124

PATIENT
  Age: 52 Year
  Sex: Male

DRUGS (3)
  1. LIPITOR [Suspect]
     Indication: ILL-DEFINED DISORDER
     Dosage: 80 MG
  2. AVAPRO [Concomitant]
  3. ASA (ACETYLSAICYLIC ACID) [Concomitant]

REACTIONS (2)
  - HEPATITIS [None]
  - RHABDOMYOLYSIS [None]
